FAERS Safety Report 10066881 (Version 2)
Quarter: 2014Q2

REPORT INFORMATION
  Report Type: Report from Study
  Country: GT (occurrence: GT)
  Receive Date: 20140408
  Receipt Date: 20140505
  Transmission Date: 20141212
  Serious: Yes (Death, Hospitalization)
  Sender: FDA-Public Use
  Company Number: GT-ROCHE-1379544

PATIENT
  Age: 80 Year
  Sex: Female

DRUGS (3)
  1. BONVIVA [Suspect]
     Indication: OSTEOPOROSIS
     Route: 048
     Dates: start: 20070508, end: 201401
  2. PLAVIX [Concomitant]
  3. CRESTOR [Concomitant]

REACTIONS (2)
  - Renal failure [Fatal]
  - Urinary tract infection [Unknown]
